FAERS Safety Report 14387569 (Version 1)
Quarter: 2018Q1

REPORT INFORMATION
  Report Type: Spontaneous
  Country: US (occurrence: US)
  Receive Date: 20180115
  Receipt Date: 20180115
  Transmission Date: 20180509
  Serious: Yes (Other)
  Sender: FDA-Public Use
  Company Number: US-SA-2017SA193277

PATIENT
  Age: 47 Year
  Sex: Female
  Weight: 145 kg

DRUGS (4)
  1. TAXOTERE [Suspect]
     Active Substance: DOCETAXEL
     Indication: BREAST CANCER FEMALE
     Route: 051
     Dates: start: 20140203, end: 20140203
  2. TAMOXIFEN [Concomitant]
     Active Substance: TAMOXIFEN
     Dosage: STRENGTH: 10 MG.
     Route: 065
     Dates: start: 200803, end: 200803
  3. TAXOTERE [Suspect]
     Active Substance: DOCETAXEL
     Indication: BREAST CANCER FEMALE
     Route: 051
     Dates: start: 20140414, end: 20140414
  4. TAMOXIFEN [Concomitant]
     Active Substance: TAMOXIFEN
     Route: 065
     Dates: start: 201509, end: 201509

REACTIONS (2)
  - Psychological trauma [Unknown]
  - Alopecia [Not Recovered/Not Resolved]

NARRATIVE: CASE EVENT DATE: 201403
